FAERS Safety Report 8126126-7 (Version None)
Quarter: 2012Q1

REPORT INFORMATION
  Report Type: 
  Country: None (occurrence: None)
  Receive Date: 20120209
  Receipt Date: 20120131
  Transmission Date: 20120608
  Serious: Yes (Hospitalization)
  Sender: FDA-Public Use
  Company Number: PHHO2012US002026

PATIENT
  Sex: Male
  Weight: 87 kg

DRUGS (2)
  1. AFINITOR [Suspect]
     Indication: GLIOBLASTOMA MULTIFORME
     Dosage: 5 MG, UNK
     Route: 048
     Dates: start: 20120111
  2. TEMOZOLOMIDE [Suspect]
     Indication: GLIOBLASTOMA MULTIFORME
     Dosage: 150 MG, UNK
     Dates: end: 20120124

REACTIONS (4)
  - HYPOXIA [None]
  - UPPER RESPIRATORY TRACT INFECTION [None]
  - HYPONATRAEMIA [None]
  - LYMPHOCYTE COUNT DECREASED [None]
